FAERS Safety Report 15163509 (Version 1)
Quarter: 2018Q3

REPORT INFORMATION
  Report Type: Spontaneous
  Country: ES (occurrence: ES)
  Receive Date: 20180719
  Receipt Date: 20180719
  Transmission Date: 20181010
  Serious: Yes (Hospitalization, Other)
  Sender: FDA-Public Use
  Company Number: ES-TEVA-2018-ES-928675

PATIENT
  Age: 77 Year
  Sex: Male

DRUGS (2)
  1. PREDNISONA (886A) [Suspect]
     Active Substance: PREDNISONE
     Indication: GLOMERULONEPHRITIS
     Dosage: 1 COMP/24H
     Route: 048
     Dates: start: 20170920, end: 20171107
  2. ADIRO 100 MG COMPRIMIDOS GASTRORRESISTENTES EFG , 30 COMPRIMIDOS [Interacting]
     Active Substance: ASPIRIN
     Dosage: 1 COMPR/24H
     Route: 048
     Dates: start: 2005, end: 20171107

REACTIONS (2)
  - Gastrointestinal ulcer haemorrhage [Recovered/Resolved]
  - Drug interaction [Unknown]

NARRATIVE: CASE EVENT DATE: 20171101
